FAERS Safety Report 12965838 (Version 4)
Quarter: 2017Q1

REPORT INFORMATION
  Report Type: Spontaneous
  Country: GB (occurrence: GB)
  Receive Date: 20161122
  Receipt Date: 20170331
  Transmission Date: 20170428
  Serious: Yes (Hospitalization)
  Sender: FDA-Public Use
  Company Number: GB-009507513-1611GBR010636

PATIENT
  Age: 71 Year
  Sex: Male

DRUGS (36)
  1. DARATUMUMAB [Suspect]
     Active Substance: DARATUMUMAB
     Dosage: 1440 MG, 1 IN 1 D
     Route: 041
     Dates: start: 20160119, end: 20160209
  2. REVLIMID [Suspect]
     Active Substance: LENALIDOMIDE
     Dosage: 25 MG, 1 IN 1 D
     Route: 048
     Dates: start: 20160607
  3. DARATUMUMAB [Suspect]
     Active Substance: DARATUMUMAB
     Dosage: 1440 MG, 1 IN 1 D
     Route: 041
     Dates: start: 20160412, end: 20160426
  4. REVLIMID [Suspect]
     Active Substance: LENALIDOMIDE
     Dosage: 25 MG, 1 IN 1 D
     Route: 048
     Dates: start: 20160802
  5. REVLIMID [Suspect]
     Active Substance: LENALIDOMIDE
     Dosage: 25 MG, 1 IN 1 D
     Route: 048
     Dates: start: 20160705
  6. ZOMETA [Concomitant]
     Active Substance: ZOLEDRONIC ACID
     Dosage: 3 MG, UNK
     Route: 065
  7. COCODAMOL [Concomitant]
     Active Substance: ACETAMINOPHEN\CODEINE PHOSPHATE
     Indication: CONTUSION
     Dosage: 16.5MG/500MG; 4 IN 1 D
     Route: 065
  8. DEXAMETHASONE. [Suspect]
     Active Substance: DEXAMETHASONE
     Dosage: 40 MG, 2 IN 1 D
     Route: 048
     Dates: start: 20151215, end: 20160107
  9. DEXAMETHASONE. [Suspect]
     Active Substance: DEXAMETHASONE
     Dosage: 40 MG, 2 IN 1 D
     Route: 048
     Dates: start: 20160216, end: 20160808
  10. DEXAMETHASONE. [Suspect]
     Active Substance: DEXAMETHASONE
     Dosage: 40 MG, 2 IN 1 D
     Route: 048
     Dates: start: 20160412
  11. DARATUMUMAB [Suspect]
     Active Substance: DARATUMUMAB
     Dosage: 1440 MG, 1 IN 1 D
     Route: 041
     Dates: start: 20160315, end: 20160330
  12. DARATUMUMAB [Suspect]
     Active Substance: DARATUMUMAB
     Dosage: 1440 MG, 1 IN 1 D
     Route: 041
     Dates: start: 20160607, end: 20160607
  13. REVLIMID [Suspect]
     Active Substance: LENALIDOMIDE
     Dosage: 25 MG, 1 IN 1 D
     Route: 048
     Dates: start: 20160119
  14. DEXAMETHASONE. [Suspect]
     Active Substance: DEXAMETHASONE
     Dosage: 40 MG, 2 IN 1 D
     Route: 048
     Dates: start: 20160119, end: 20160209
  15. DARATUMUMAB [Suspect]
     Active Substance: DARATUMUMAB
     Indication: PLASMA CELL MYELOMA
     Dosage: 1440 MG, 1 IN 1 D
     Route: 041
     Dates: start: 20160216, end: 20160303
  16. DARATUMUMAB [Suspect]
     Active Substance: DARATUMUMAB
     Dosage: 1440 MG, 1 IN 1 D
     Route: 041
     Dates: start: 20160926
  17. REVLIMID [Suspect]
     Active Substance: LENALIDOMIDE
     Dosage: 25 MG, 1 IN 1 D
     Route: 048
     Dates: start: 20160315
  18. ACYCLOVIR. [Concomitant]
     Active Substance: ACYCLOVIR
     Indication: INFECTION PROPHYLAXIS
     Dosage: 400 MG, 2 IN 1 D
     Route: 048
     Dates: start: 20151215
  19. DARATUMUMAB [Suspect]
     Active Substance: DARATUMUMAB
     Dosage: 1440 MG, 1 IN 1 D
     Route: 041
     Dates: start: 20160831
  20. DARATUMUMAB [Suspect]
     Active Substance: DARATUMUMAB
     Dosage: 1440 MG, 1 IN 1 D
     Route: 041
     Dates: start: 20160510, end: 20160524
  21. REVLIMID [Suspect]
     Active Substance: LENALIDOMIDE
     Indication: PLASMA CELL MYELOMA
     Dosage: 25 MG, 1 IN 1 D
     Route: 048
     Dates: start: 20160510
  22. REVLIMID [Suspect]
     Active Substance: LENALIDOMIDE
     Dosage: 25 MG, 1 IN 1 D
     Route: 048
     Dates: start: 20160412
  23. REVLIMID [Suspect]
     Active Substance: LENALIDOMIDE
     Dosage: 25 MG, 1 IN 1 D
     Route: 048
     Dates: start: 20160928
  24. DEXAMETHASONE. [Suspect]
     Active Substance: DEXAMETHASONE
     Dosage: 40 MG, 2 IN 1 D
     Route: 048
     Dates: end: 20160107
  25. DEXAMETHASONE. [Suspect]
     Active Substance: DEXAMETHASONE
     Dosage: 40 MG, 2 IN 1 D
     Route: 048
     Dates: end: 20160823
  26. DEXAMETHASONE. [Suspect]
     Active Substance: DEXAMETHASONE
     Dosage: 40 MG, 2 IN 1 D
     Route: 048
     Dates: start: 20160928
  27. DARATUMUMAB [Suspect]
     Active Substance: DARATUMUMAB
     Dosage: 1440 MG, 1 IN 1 D
     Route: 041
     Dates: start: 20160802
  28. DARATUMUMAB [Suspect]
     Active Substance: DARATUMUMAB
     Dosage: 1440 MG, 1 IN 1 D
     Route: 041
     Dates: start: 20160705
  29. REVLIMID [Suspect]
     Active Substance: LENALIDOMIDE
     Dosage: 25 MG, 1 IN 1 D
     Route: 048
     Dates: start: 20160831
  30. REVLIMID [Suspect]
     Active Substance: LENALIDOMIDE
     Dosage: 25 MG, 1 IN 1 D
     Route: 048
     Dates: start: 20160216
  31. ZOMETA [Concomitant]
     Active Substance: ZOLEDRONIC ACID
     Indication: PROPHYLAXIS
     Dosage: 3 MG, UNK
     Route: 065
     Dates: start: 20161026
  32. DEXAMETHASONE. [Suspect]
     Active Substance: DEXAMETHASONE
     Indication: PLASMA CELL MYELOMA
     Dosage: UNK
     Route: 065
     Dates: start: 20161019
  33. DEXAMETHASONE. [Suspect]
     Active Substance: DEXAMETHASONE
     Dosage: 40 MG, 2 IN 1 D
     Route: 048
     Dates: start: 20160831, end: 20160914
  34. DARATUMUMAB [Suspect]
     Active Substance: DARATUMUMAB
     Dosage: 1440 MG, 1 IN 1 D
     Route: 041
     Dates: start: 20160928
  35. REVLIMID [Suspect]
     Active Substance: LENALIDOMIDE
     Dosage: UNK
     Route: 065
     Dates: start: 20161018
  36. COCODAMOL [Concomitant]
     Active Substance: ACETAMINOPHEN\CODEINE PHOSPHATE
     Indication: MUSCULOSKELETAL PAIN

REACTIONS (1)
  - Diarrhoea [Recovered/Resolved]

NARRATIVE: CASE EVENT DATE: 20161018
